FAERS Safety Report 8010245-X (Version None)
Quarter: 2011Q4

REPORT INFORMATION
  Report Type: 
  Country: None (occurrence: None)
  Receive Date: 20111228
  Receipt Date: 20111219
  Transmission Date: 20120403
  Serious: Yes (Other)
  Sender: FDA-Public Use
  Company Number: US-SHIRE-ALL1-2011-05040

PATIENT
  Sex: Male
  Weight: 49.887 kg

DRUGS (2)
  1. VYVANSE [Suspect]
     Indication: ATTENTION DEFICIT/HYPERACTIVITY DISORDER
     Dosage: 50 MG, 1X/DAY:QD
     Route: 048
     Dates: start: 20110601, end: 20111130
  2. MELATONIN [Concomitant]
     Indication: INSOMNIA
     Dosage: 500 ?G, AS REQ'D
     Route: 048

REACTIONS (2)
  - AGGRESSION [None]
  - SUICIDAL IDEATION [None]
